FAERS Safety Report 8277435-2 (Version None)
Quarter: 2012Q2

REPORT INFORMATION
  Report Type: 
  Country: None (occurrence: None)
  Receive Date: 20120412
  Receipt Date: 20120402
  Transmission Date: 20120825
  Serious: Yes (Other)
  Sender: FDA-Public Use
  Company Number: DE-TEVA-331868GER

PATIENT
  Sex: Female

DRUGS (1)
  1. CABERGOLIN-RATIOPHARM 0.5 MG TABLETTEN [Suspect]
     Indication: PARKINSON'S DISEASE
     Route: 048

REACTIONS (1)
  - PULMONARY HYPERTENSION [None]
